FAERS Safety Report 7941090-9 (Version None)
Quarter: 2011Q4

REPORT INFORMATION
  Report Type: 
  Country: None (occurrence: None)
  Receive Date: 20111122
  Receipt Date: 20111114
  Transmission Date: 20120403
  Serious: Yes (Hospitalization, Other)
  Sender: FDA-Public Use
  Company Number: ADR-2011-10888

PATIENT
  Age: 61 Year
  Sex: Male

DRUGS (3)
  1. MORPHINE [Concomitant]
  2. BACLOFEN [Suspect]
     Indication: PAIN
     Dosage: SEE IMAGE
  3. BACLOFEN [Suspect]
     Indication: POST LAMINECTOMY SYNDROME
     Dosage: SEE IMAGE

REACTIONS (3)
  - DEVICE RELATED INFECTION [None]
  - STITCH ABSCESS [None]
  - DEVICE LEAKAGE [None]
